FAERS Safety Report 8856897 (Version 1)
Quarter: 2012Q4

REPORT INFORMATION
  Report Type: 
  Country: US (occurrence: US)
  Receive Date: 20121023
  Receipt Date: 20121023
  Transmission Date: 20130627
  Serious: No
  Sender: FDA-Public Use
  Company Number: US-AMGEN-USASP2012055594

PATIENT
  Age: 7 Year
  Sex: Female

DRUGS (1)
  1. ENBREL [Suspect]
     Indication: JUVENILE ARTHRITIS
     Dosage: 0.6 ml, qwk
     Route: 058
     Dates: start: 20110506

REACTIONS (2)
  - Scratch [Not Recovered/Not Resolved]
  - Infection [Not Recovered/Not Resolved]
